FAERS Safety Report 25374297 (Version 1)
Quarter: 2025Q2

REPORT INFORMATION
  Report Type: Report from Study
  Country: US (occurrence: US)
  Receive Date: 20250529
  Receipt Date: 20250529
  Transmission Date: 20250716
  Serious: Yes (Hospitalization)
  Sender: EISAI
  Company Number: US-Eisai-EC-2025-189962

PATIENT
  Age: 69 Year
  Sex: Female
  Weight: 64.8 kg

DRUGS (4)
  1. LENVIMA [Suspect]
     Active Substance: LENVATINIB
     Indication: Renal cancer
     Dates: start: 20220801
  2. LENVIMA [Suspect]
     Active Substance: LENVATINIB
     Dates: start: 20240719, end: 2025
  3. LENVIMA [Suspect]
     Active Substance: LENVATINIB
     Dates: start: 2025, end: 202505
  4. LENVIMA [Suspect]
     Active Substance: LENVATINIB
     Dates: start: 202505

REACTIONS (3)
  - Hepatic enzyme increased [Unknown]
  - Abdominal pain [Unknown]
  - Biliary colic [Unknown]

NARRATIVE: CASE EVENT DATE: 20250501
